FAERS Safety Report 18664143 (Version 3)
Quarter: 2021Q2

REPORT INFORMATION
  Report Type: Report from Study
  Country: None (occurrence: FR)
  Receive Date: 20201225
  Receipt Date: 20210407
  Transmission Date: 20210717
  Serious: Yes (Other)
  Sender: FDA-Public Use
  Company Number: FR-ABBVIE-20K-056-3594246-00

PATIENT
  Sex: Female

DRUGS (2)
  1. DUODOPA [Suspect]
     Active Substance: CARBIDOPA\LEVODOPA
     Indication: PARKINSON^S DISEASE
     Dosage: 20 MG/ML 5 MG/ML, MD: 5.5 ML, CONTINUOUS FLOW RATE DURING DAY: 4 ML/H/ 7H:30 TO 21 H:30
     Route: 050
     Dates: start: 201903
  2. DUODOPA [Suspect]
     Active Substance: CARBIDOPA\LEVODOPA

REACTIONS (10)
  - Fall [Not Recovered/Not Resolved]
  - Mobility decreased [Not Recovered/Not Resolved]
  - Parkinson^s disease [Recovered/Resolved]
  - Intentional device misuse [Recovered/Resolved]
  - Device breakage [Recovered/Resolved]
  - Stubbornness [Unknown]
  - Loss of personal independence in daily activities [Not Recovered/Not Resolved]
  - Device dislocation [Recovered/Resolved]
  - Parkinson^s disease [Unknown]
  - SARS-CoV-2 test positive [Not Recovered/Not Resolved]

NARRATIVE: CASE EVENT DATE: 20200928
